FAERS Safety Report 10388245 (Version 2)
Quarter: 2014Q3

REPORT INFORMATION
  Report Type: Report from Study
  Country: US (occurrence: US)
  Receive Date: 20140815
  Receipt Date: 20140908
  Transmission Date: 20150326
  Serious: Yes (Other)
  Sender: FDA-Public Use
  Company Number: US-ELI_LILLY_AND_COMPANY-US201408002140

PATIENT
  Age: 26 Year
  Sex: Male

DRUGS (3)
  1. OLANZAPINE LONG-ACTING IM [Suspect]
     Active Substance: OLANZAPINE PAMOATE
     Indication: SCHIZOPHRENIA
     Dosage: UNK
     Route: 030
     Dates: start: 201402
  2. OLANZAPINE LONG-ACTING IM [Suspect]
     Active Substance: OLANZAPINE PAMOATE
     Dosage: 420 MG, MONTHLY (1/M)
     Route: 030
     Dates: start: 20140716
  3. OLANZAPINE LONG-ACTING IM [Suspect]
     Active Substance: OLANZAPINE PAMOATE
     Dosage: 300 MG, UNK
     Route: 030
     Dates: start: 20140603

REACTIONS (4)
  - Urinary incontinence [Unknown]
  - Sedation [Unknown]
  - Disorientation [Recovering/Resolving]
  - Muscle rigidity [Unknown]

NARRATIVE: CASE EVENT DATE: 20140716
